FAERS Safety Report 10245402 (Version 2)
Quarter: 2014Q3

REPORT INFORMATION
  Report Type: Report from Study
  Country: MX (occurrence: MX)
  Receive Date: 20140618
  Receipt Date: 20140801
  Transmission Date: 20150326
  Serious: Yes (Other)
  Sender: FDA-Public Use
  Company Number: PHHY2014MX075531

PATIENT
  Sex: Male

DRUGS (2)
  1. STALEVO [Suspect]
     Active Substance: CARBIDOPA\ENTACAPONE\LEVODOPA
     Indication: PARKINSON^S DISEASE
     Dosage: 1.5 DF (150, 200, 37.5), DAILY (0.5 DF IN THE MORNING, 0.5 DF AT NOON, 0.5 DF AT NIGHT)
     Route: 048
     Dates: start: 2011
  2. NORFERON [Concomitant]
     Indication: CEREBROVASCULAR DISORDER
     Dosage: UNK UKN, DAILY
     Dates: start: 2012

REACTIONS (2)
  - Arrhythmia [Recovering/Resolving]
  - Wrong technique in drug usage process [Not Recovered/Not Resolved]

NARRATIVE: CASE EVENT DATE: 2012
